FAERS Safety Report 25745240 (Version 2)
Quarter: 2025Q3

REPORT INFORMATION
  Report Type: Report from Study
  Country: US (occurrence: US)
  Receive Date: 20250901
  Receipt Date: 20250925
  Transmission Date: 20251021
  Serious: Yes (Other)
  Sender: TAKEDA
  Company Number: US-TAKEDA-2025TUS076045

PATIENT
  Sex: Female
  Weight: 85.27 kg

DRUGS (8)
  1. VEDOLIZUMAB [Suspect]
     Active Substance: VEDOLIZUMAB
     Indication: Crohn^s disease
  2. VEDOLIZUMAB [Suspect]
     Active Substance: VEDOLIZUMAB
     Indication: Crohn^s disease
     Dosage: 108 MILLIGRAM, Q2WEEKS
  3. VEDOLIZUMAB [Suspect]
     Active Substance: VEDOLIZUMAB
  4. ATORVASTATIN [Concomitant]
     Active Substance: ATORVASTATIN
     Dosage: 20 MILLIGRAM, QD
     Dates: start: 20250108
  5. BENAZEPRIL [Concomitant]
     Active Substance: BENAZEPRIL HYDROCHLORIDE
     Dosage: 20 MILLIGRAM, QD
     Dates: start: 20250108
  6. ESTRACE [Concomitant]
     Active Substance: ESTRADIOL
     Dosage: 0.1 MILLIGRAM PER GRAM, TID
     Dates: start: 20250124
  7. HUMIRA [Concomitant]
     Active Substance: ADALIMUMAB
     Dosage: 0.8 MILLILITER, Q2WEEKS
     Dates: start: 20250108
  8. LORAZEPAM [Concomitant]
     Active Substance: LORAZEPAM
     Dosage: 1 MILLIGRAM, QD
     Dates: start: 20250108

REACTIONS (6)
  - Inflammatory bowel disease [Unknown]
  - Large intestine erosion [Unknown]
  - Stress cardiomyopathy [Unknown]
  - Product dose omission issue [Unknown]
  - Gastrointestinal mucosa hyperaemia [Unknown]
  - Haemorrhoids [Unknown]
